FAERS Safety Report 9077002 (Version 3)
Quarter: 2013Q2

REPORT INFORMATION
  Report Type: Report from Study
  Country: BR (occurrence: BR)
  Receive Date: 20130130
  Receipt Date: 20130402
  Transmission Date: 20140414
  Serious: Yes (Other)
  Sender: FDA-Public Use
  Company Number: BR-US-EMD SERONO, INC.-7189880

PATIENT
  Age: 52 Year
  Sex: Male

DRUGS (3)
  1. REBIF [Suspect]
     Indication: RELAPSING-REMITTING MULTIPLE SCLEROSIS
     Dates: start: 19991130
  2. ROSUVASTATIN CALCIUM [Concomitant]
     Indication: BLOOD CHOLESTEROL ABNORMAL
  3. ARCALION [Concomitant]
     Indication: ANTEROGRADE AMNESIA

REACTIONS (4)
  - Hypertensive crisis [Unknown]
  - Eye pain [Unknown]
  - Memory impairment [Unknown]
  - Headache [Unknown]
